FAERS Safety Report 12094547 (Version 2)
Quarter: 2017Q1

REPORT INFORMATION
  Report Type: Report from Study
  Country: CA (occurrence: CA)
  Receive Date: 20160219
  Receipt Date: 20170321
  Transmission Date: 20170428
  Serious: Yes (Other)
  Sender: FDA-Public Use
  Company Number: CA-JNJFOC-20160217020

PATIENT
  Age: 47 Year
  Sex: Male
  Weight: 115.8 kg

DRUGS (1)
  1. REMICADE [Suspect]
     Active Substance: INFLIXIMAB
     Indication: COLITIS ULCERATIVE
     Route: 042
     Dates: start: 20150515, end: 20160216

REACTIONS (2)
  - Large intestinal haemorrhage [Unknown]
  - Colectomy [Unknown]

NARRATIVE: CASE EVENT DATE: 20160216
